FAERS Safety Report 7865870-3 (Version None)
Quarter: 2011Q4

REPORT INFORMATION
  Report Type: 
  Country: None (occurrence: None)
  Receive Date: 20111028
  Receipt Date: 20110311
  Transmission Date: 20120403
  Serious: No
  Sender: FDA-Public Use
  Company Number: US-GLAXOSMITHKLINE-A0917816A

PATIENT
  Age: 50 Year
  Sex: Female

DRUGS (3)
  1. ADVAIR DISKUS 100/50 [Suspect]
     Indication: ASTHMA
     Dosage: 1PUFF TWICE PER DAY
     Route: 055
  2. SYNTHROID [Concomitant]
  3. ALBUTEROL [Concomitant]

REACTIONS (4)
  - HEADACHE [None]
  - OROPHARYNGEAL PAIN [None]
  - DYSPHONIA [None]
  - THROAT TIGHTNESS [None]
